FAERS Safety Report 17044405 (Version 1)
Quarter: 2019Q4

REPORT INFORMATION
  Report Type: Spontaneous
  Country: US (occurrence: US)
  Receive Date: 20191116
  Receipt Date: 20191116
  Transmission Date: 20200122
  Serious: Yes (Life-Threatening, Disabling, Other)
  Sender: FDA-Public Use
  Company Number: None

PATIENT
  Age: 25 Year
  Sex: Female
  Weight: 81.9 kg

DRUGS (11)
  1. TOPAMAX [Concomitant]
     Active Substance: TOPIRAMATE
  2. MAGNESIUM [Concomitant]
     Active Substance: MAGNESIUM
  3. DULOXETINE DELAYED-RELEASE CAPSULES, USP (GENERIC) BRAND NAME-CYMBALTA [Suspect]
     Active Substance: DULOXETINE
     Indication: FIBROMYALGIA
     Dosage: ?          QUANTITY:1 CAPSULE(S);?
     Route: 048
     Dates: start: 20181001
  4. DULOXETINE DELAYED-RELEASE CAPSULES, USP (GENERIC) BRAND NAME-CYMBALTA [Suspect]
     Active Substance: DULOXETINE
     Indication: SPINAL OPERATION
     Dosage: ?          QUANTITY:1 CAPSULE(S);?
     Route: 048
     Dates: start: 20181001
  5. ADVAIR HFA [Concomitant]
     Active Substance: FLUTICASONE PROPIONATE\SALMETEROL XINAFOATE
  6. SYNTHROID [Concomitant]
     Active Substance: LEVOTHYROXINE SODIUM
  7. GABAPENTIN. [Concomitant]
     Active Substance: GABAPENTIN
  8. VITAMIN D2 [Concomitant]
     Active Substance: ERGOCALCIFEROL
  9. DULOXETINE DELAYED-RELEASE CAPSULES, USP (GENERIC) BRAND NAME-CYMBALTA [Suspect]
     Active Substance: DULOXETINE
     Indication: RADICULOPATHY
     Dosage: ?          QUANTITY:1 CAPSULE(S);?
     Route: 048
     Dates: start: 20181001
  10. CYMBALTA [Concomitant]
     Active Substance: DULOXETINE HYDROCHLORIDE
  11. PROAIR INHALER [Concomitant]
     Active Substance: ALBUTEROL SULFATE

REACTIONS (5)
  - Hypoaesthesia [None]
  - Loss of control of legs [None]
  - Sensory loss [None]
  - Fall [None]
  - Allodynia [None]

NARRATIVE: CASE EVENT DATE: 20191019
